FAERS Safety Report 13509738 (Version 2)
Quarter: 2018Q2

REPORT INFORMATION
  Report Type: Report from Study
  Country: US (occurrence: US)
  Receive Date: 20170503
  Receipt Date: 20180618
  Transmission Date: 20180711
  Serious: No
  Sender: FDA-Public Use
  Company Number: US-SA-2017SA074571

PATIENT
  Age: 55 Year
  Sex: Female
  Weight: 71 kg

DRUGS (2)
  1. ALIROCUMAB [Suspect]
     Active Substance: ALIROCUMAB
     Indication: TYPE V HYPERLIPIDAEMIA
     Dosage: 75 MG,QOW
     Route: 058
     Dates: start: 20170130
  2. LEVOTHYROXINE. [Concomitant]
     Active Substance: LEVOTHYROXINE
     Dosage: UNK UNK,UNK
     Route: 065

REACTIONS (11)
  - Product use issue [Unknown]
  - Diarrhoea [Unknown]
  - Sluggishness [Unknown]
  - Asthenia [Unknown]
  - Nasal congestion [Unknown]
  - Myalgia [Unknown]
  - Blood glucose increased [Unknown]
  - Sinusitis [Unknown]
  - Alanine aminotransferase increased [Unknown]
  - Injection site pain [Unknown]
  - Fatigue [Unknown]
